FAERS Safety Report 15048542 (Version 1)
Quarter: 2018Q2

REPORT INFORMATION
  Report Type: Spontaneous
  Country: DE (occurrence: DE)
  Receive Date: 20180622
  Receipt Date: 20180622
  Transmission Date: 20180711
  Serious: Yes (Hospitalization)
  Sender: FDA-Public Use
  Company Number: DE-TEVA-2018-DE-911123

PATIENT
  Age: 59 Year
  Sex: Male
  Weight: 76 kg

DRUGS (8)
  1. HCT [Suspect]
     Active Substance: HYDROCHLOROTHIAZIDE
     Dosage: 1-0-0-0
     Route: 048
  2. METOPROLOL RETARD [Suspect]
     Active Substance: METOPROLOL TARTRATE
     Dosage: 1-0-1-0
     Route: 048
  3. ASS 100 [Concomitant]
     Active Substance: ASPIRIN
     Dosage: 1-0-0-0
     Route: 048
  4. XGEVA [Concomitant]
     Active Substance: DENOSUMAB
     Dosage: SCHEME, SOLUTION FOR INJECTION / INFUSION
  5. CALCIUM/COLECALCIFEROL [Concomitant]
     Active Substance: CALCIUM\CHOLECALCIFEROL
     Dosage: 1-0-0-0,
     Route: 048
  6. CANDESARTAN. [Suspect]
     Active Substance: CANDESARTAN
     Dosage: 1-0-0-0
     Route: 048
  7. SIMVASTATIN. [Concomitant]
     Active Substance: SIMVASTATIN
     Dosage: 0-0-1-0
     Route: 048
  8. ALLOPURINOL. [Concomitant]
     Active Substance: ALLOPURINOL
     Dosage: 1-0-0-0
     Route: 048

REACTIONS (2)
  - Syncope [Unknown]
  - Dizziness [Unknown]
